FAERS Safety Report 9719269 (Version 1)
Quarter: 2013Q4

REPORT INFORMATION
  Report Type: Report from Study
  Country: BR (occurrence: BR)
  Receive Date: 20131127
  Receipt Date: 20131127
  Transmission Date: 20140711
  Serious: Yes (Other)
  Sender: FDA-Public Use
  Company Number: PHHY2013BR136325

PATIENT
  Sex: Female
  Weight: 61 kg

DRUGS (2)
  1. DIOVAN HCT [Suspect]
     Indication: HYPERTENSION
     Dosage: 1 DF, (320 MG VALS/12.5 MG HCTZ) ONCE IN THE MORNING
     Route: 048
     Dates: end: 201308
  2. SYNTHROID [Concomitant]
     Indication: HORMONE REPLACEMENT THERAPY
     Dosage: 88 MG, UNK

REACTIONS (1)
  - Benign neoplasm of thyroid gland [Unknown]
